FAERS Safety Report 21773190 (Version 1)
Quarter: 2022Q4

REPORT INFORMATION
  Report Type: Spontaneous
  Country: US (occurrence: US)
  Receive Date: 20221223
  Receipt Date: 20221223
  Transmission Date: 20230112
  Serious: No
  Sender: FDA-Public Use
  Company Number: US-JNJFOC-20161009018

PATIENT
  Age: 11 Year
  Sex: Male

DRUGS (5)
  1. RISPERDAL [Suspect]
     Active Substance: RISPERIDONE
     Indication: Autism spectrum disorder
     Dosage: 1MG IN THE MORNING AND AFTERNOON AND 1.5 MG AT BEDTIME
     Route: 048
  2. RISPERDAL [Suspect]
     Active Substance: RISPERIDONE
     Indication: Hallucination, auditory
     Dosage: 1MG IN THE MORNING AND BEDTIME
     Route: 048
  3. RISPERDAL [Suspect]
     Active Substance: RISPERIDONE
     Indication: Hallucination, visual
     Dosage: 1MG IN THE MORNING AND 1.5 MG AT BEDTIME
     Route: 048
  4. ZOLOFT [Suspect]
     Active Substance: SERTRALINE HYDROCHLORIDE
     Indication: Separation anxiety disorder
     Route: 065
  5. DEPAKOTE [Suspect]
     Active Substance: DIVALPROEX SODIUM
     Indication: Aggression
     Route: 065

REACTIONS (3)
  - Weight increased [Recovering/Resolving]
  - Increased appetite [Recovering/Resolving]
  - Off label use [Unknown]

NARRATIVE: CASE EVENT DATE: 19991006
